FAERS Safety Report 8391036 (Version 4)
Quarter: 2012Q4

REPORT INFORMATION
  Report Type: Report from Study
  Country: FR (occurrence: FR)
  Receive Date: 20120206
  Receipt Date: 20120904
  Transmission Date: 20130627
  Serious: Yes (Other)
  Sender: FDA-Public Use
  Company Number: FR-CELGENEUS-056-C5013-12012295

PATIENT
  Age: 75 Year
  Sex: Male
  Weight: 82.5 kg

DRUGS (10)
  1. CC-5013 [Suspect]
     Indication: MULTIPLE MYELOMA
     Dosage: 25 Milligram
     Route: 048
     Dates: start: 20100105
  2. CC-5013 [Suspect]
     Dosage: 15 Milligram
     Route: 048
     Dates: start: 20120105
  3. DEXAMETHASONE [Suspect]
     Indication: MULTIPLE MYELOMA
     Dosage: 40 Milligram
     Route: 065
     Dates: start: 20100105, end: 20100323
  4. ACTONEL [Concomitant]
     Indication: OSTEOPOROSIS
     Dosage: 5 Milligram
     Route: 048
     Dates: start: 200808
  5. ARIXTRA [Concomitant]
     Indication: THROMBOSIS PROPHYLAXIS
     Dosage: 7.5 Milligram
     Route: 058
     Dates: start: 20100326
  6. SMECTA [Concomitant]
     Indication: DIARRHEA
     Dosage: 2bags
     Route: 048
     Dates: start: 20100720
  7. AMOXICILLIN [Concomitant]
     Indication: BRONCHITIS
     Dosage: 1 Gram
     Route: 048
     Dates: start: 20101204, end: 20101211
  8. OROKEN [Concomitant]
     Indication: BRONCHITIS
     Dosage: 200 Milligram
     Route: 048
     Dates: start: 20101218, end: 20101223
  9. LERCAN [Concomitant]
     Indication: BLOOD PRESSURE HIGH
     Dosage: 15 Milligram
     Route: 048
     Dates: start: 20110301
  10. ARESTAL [Concomitant]
     Indication: DIARRHEA
     Dosage: 1 Milligram
     Route: 048
     Dates: start: 20111001

REACTIONS (1)
  - Basal cell carcinoma [Recovered/Resolved]
